FAERS Safety Report 20577327 (Version 2)
Quarter: 2022Q1

REPORT INFORMATION
  Report Type: Spontaneous
  Country: JP (occurrence: JP)
  Receive Date: 20220310
  Receipt Date: 20220322
  Transmission Date: 20220423
  Serious: Yes (Other)
  Sender: FDA-Public Use
  Company Number: JP-TEVA-2022-JP-2014027

PATIENT
  Age: 69 Year
  Sex: Male

DRUGS (5)
  1. CARBOPLATIN [Suspect]
     Active Substance: CARBOPLATIN
     Indication: Bladder transitional cell carcinoma
     Dosage: SECOND-LINE CHEMOTHERAPY
     Route: 065
  2. EPIRUBICIN [Suspect]
     Active Substance: EPIRUBICIN
     Indication: Bladder transitional cell carcinoma
     Dosage: SECOND-LINE CHEMOTHERAPY
     Route: 065
  3. METHOTREXATE [Suspect]
     Active Substance: METHOTREXATE
     Indication: Bladder transitional cell carcinoma
     Dosage: SECOND-LINE CHEMOTHERAPY
     Route: 065
  4. VINBLASTINE [Suspect]
     Active Substance: VINBLASTINE
     Indication: Bladder transitional cell carcinoma
     Dosage: SECOND-LINE CHEMOTHERAPY
     Route: 065
  5. PEMBROLIZUMAB [Suspect]
     Active Substance: PEMBROLIZUMAB
     Indication: Bladder transitional cell carcinoma
     Route: 065

REACTIONS (3)
  - Adrenocorticotropic hormone deficiency [Unknown]
  - Rash [Unknown]
  - Drug ineffective [Unknown]
